FAERS Safety Report 8385003-7 (Version None)
Quarter: 2012Q2

REPORT INFORMATION
  Report Type: 
  Country: None (occurrence: None)
  Receive Date: 20120524
  Receipt Date: 20120516
  Transmission Date: 20120825
  Serious: Yes (Other)
  Sender: FDA-Public Use
  Company Number: IE-BAXTER-2011BH036310

PATIENT
  Age: 18 Month

DRUGS (4)
  1. VOLTRAL [Concomitant]
     Route: 054
     Dates: start: 20110628
  2. AUGMENTIN '125' [Suspect]
     Route: 042
     Dates: start: 20110629, end: 20110629
  3. DEXTROSE 5% AND SODIUM CHLORIDE 0.45% [Suspect]
     Indication: DEHYDRATION
     Route: 042
     Dates: start: 20110628, end: 20110629
  4. ACETAMINOPHEN [Concomitant]
     Route: 054
     Dates: start: 20110628

REACTIONS (4)
  - OEDEMA [None]
  - MEDICATION ERROR [None]
  - SCAR [None]
  - EXTRAVASATION [None]
